FAERS Safety Report 9746562 (Version 1)
Quarter: 2013Q4

REPORT INFORMATION
  Report Type: Spontaneous
  Country: US (occurrence: None)
  Receive Date: 20131209
  Receipt Date: 20131209
  Transmission Date: 20140711
  Serious: Yes (Other)
  Sender: FDA-Public Use
  Company Number: None

PATIENT
  Age: 80 Year
  Sex: Male

DRUGS (4)
  1. ACTEMRA [Suspect]
     Indication: RHEUMATOID ARTHRITIS
     Route: 042
     Dates: start: 201306, end: 201309
  2. CAVEDILOL [Concomitant]
     Indication: RHEUMATOID ARTHRITIS
  3. CRESTOR [Concomitant]
  4. LISINOPRIL [Concomitant]

REACTIONS (1)
  - Urticaria [None]
